FAERS Safety Report 21790324 (Version 1)
Quarter: 2022Q4

REPORT INFORMATION
  Report Type: Report from Study
  Country: KR (occurrence: KR)
  Receive Date: 20221228
  Receipt Date: 20221228
  Transmission Date: 20230113
  Serious: Yes (Other)
  Sender: FDA-Public Use
  Company Number: KR-MYLANLABS-2022M1146958

PATIENT
  Sex: Female
  Weight: 57.1 kg

DRUGS (19)
  1. TRASTUZUMAB [Suspect]
     Active Substance: TRASTUZUMAB
     Indication: Breast cancer
     Dosage: 456 MILLIGRAM, QD
     Route: 042
     Dates: start: 20201128, end: 20201128
  2. TRASTUZUMAB [Suspect]
     Active Substance: TRASTUZUMAB
     Dosage: 342 MILLIGRAM, QD
     Route: 042
     Dates: start: 20201218, end: 20201218
  3. TRASTUZUMAB [Suspect]
     Active Substance: TRASTUZUMAB
     Dosage: 342 MILLIGRAM, QD
     Route: 042
     Dates: start: 20210108, end: 20210108
  4. TRASTUZUMAB [Suspect]
     Active Substance: TRASTUZUMAB
     Dosage: 342 MILLIGRAM, QD
     Route: 042
     Dates: start: 20210128, end: 20210128
  5. TRASTUZUMAB [Suspect]
     Active Substance: TRASTUZUMAB
     Dosage: 342 MILLIGRAM, QD
     Route: 042
     Dates: start: 20210219, end: 20210219
  6. SODIUM CHLORIDE [Concomitant]
     Active Substance: SODIUM CHLORIDE
     Indication: Prophylaxis
     Dosage: 100 MILLILITER, QD
     Route: 042
     Dates: start: 20201128, end: 20210424
  7. SODIUM CHLORIDE [Concomitant]
     Active Substance: SODIUM CHLORIDE
     Dosage: 10 MILLILITER, QD
     Route: 042
     Dates: start: 20201128, end: 20210312
  8. SODIUM CHLORIDE [Concomitant]
     Active Substance: SODIUM CHLORIDE
     Dosage: 250 MILLILITER, QD
     Route: 042
     Dates: start: 20201128, end: 20210505
  9. DEXAMETHASONE [Concomitant]
     Active Substance: DEXAMETHASONE
     Indication: Prophylaxis
     Dosage: 5 MILLILITER, QD
     Route: 042
     Dates: start: 20201128, end: 20210312
  10. THIAMINE HYDROCHLORIDE [Concomitant]
     Active Substance: THIAMINE HYDROCHLORIDE
     Indication: Prophylaxis
     Dosage: 10 MILLIGRAM, QD
     Route: 048
     Dates: start: 20201128, end: 20210313
  11. PYRIDOXINE [Concomitant]
     Active Substance: PYRIDOXINE
     Indication: Prophylaxis
     Dosage: 50 MILLIGRAM, QD
     Route: 048
     Dates: start: 20201128, end: 20210313
  12. CHLORPHENIRAMINE MALEATE [Concomitant]
     Active Substance: CHLORPHENIRAMINE MALEATE
     Indication: Prophylaxis
     Dosage: 2 MILLILITER, QD
     Route: 042
     Dates: start: 20201128, end: 20210505
  13. METOCLOPRAMIDE [Concomitant]
     Active Substance: METOCLOPRAMIDE
     Indication: Prophylaxis
     Dosage: 5 MILLIGRAM, QD
     Route: 048
     Dates: start: 20201128, end: 20210313
  14. FAMOTIDINE [Concomitant]
     Active Substance: FAMOTIDINE
     Indication: Prophylaxis
     Dosage: 20 MILLIGRAM, QD
     Route: 048
     Dates: start: 20201129, end: 20210424
  15. CEFTEZOLE SODIUM [Concomitant]
     Active Substance: CEFTEZOLE SODIUM
     Indication: Prophylaxis
     Dosage: 1 GRAM, QD
     Route: 042
     Dates: start: 20201128, end: 20201128
  16. ACETAMINOPHEN [Concomitant]
     Active Substance: ACETAMINOPHEN
     Indication: Prophylaxis
     Dosage: 650 MILLIGRAM, QD
     Route: 048
     Dates: start: 20201128, end: 20210505
  17. NEURONTIN [Concomitant]
     Active Substance: GABAPENTIN
     Indication: Prophylaxis
     Dosage: 300 MILLIGRAM, QD
     Route: 048
     Dates: start: 20201128, end: 20210313
  18. DOCETAXEL [Concomitant]
     Active Substance: DOCETAXEL
     Indication: Breast cancer
     Dosage: 120 MILLIGRAM, QD
     Route: 042
     Dates: start: 20201128, end: 20210312
  19. ACETAMINOPHEN\TRAMADOL HYDROCHLORIDE [Concomitant]
     Active Substance: ACETAMINOPHEN\TRAMADOL HYDROCHLORIDE
     Indication: Prophylaxis
     Dosage: 325 MILLIGRAM, QD
     Route: 048
     Dates: start: 20201128, end: 20210313

REACTIONS (6)
  - Ascites [Recovered/Resolved]
  - Erythema [Recovered/Resolved]
  - Weight increased [Recovering/Resolving]
  - Urticaria [Recovered/Resolved]
  - Pyrexia [Recovered/Resolved]
  - Diarrhoea [Recovered/Resolved]

NARRATIVE: CASE EVENT DATE: 20201204
